FAERS Safety Report 15884890 (Version 2)
Quarter: 2019Q1

REPORT INFORMATION
  Report Type: Spontaneous
  Country: US (occurrence: US)
  Receive Date: 20190129
  Receipt Date: 20190325
  Transmission Date: 20190417
  Serious: Yes (Death)
  Sender: FDA-Public Use
  Company Number: US-OPKO PHARMACEUTICALS, LLC-2019OPK00003

PATIENT

DRUGS (1)
  1. RAYALDEE [Suspect]
     Active Substance: CALCIFEDIOL
     Dosage: 30 MCG, UNK
     Route: 048

REACTIONS (1)
  - Death [Fatal]
